FAERS Safety Report 6278962-X (Version None)
Quarter: 2009Q3

REPORT INFORMATION
  Report Type: 
  Country: None (occurrence: None)
  Receive Date: 20090723
  Receipt Date: 20090715
  Transmission Date: 20100115
  Serious: Yes (Other)
  Sender: FDA-Public Use
  Company Number: US-ELI_LILLY_AND_COMPANY-US200907003357

PATIENT
  Sex: Male

DRUGS (5)
  1. HUMALOG [Suspect]
     Dosage: 5 U, AS NEEDED
  2. HUMALOG [Suspect]
     Dosage: 7 U, AS NEEDED
  3. HUMALOG [Suspect]
     Dosage: 4 U, AS NEEDED
  4. HUMALOG [Suspect]
     Dosage: 6 U, AS NEEDED
  5. LANTUS [Concomitant]
     Dosage: 9 U, UNK

REACTIONS (3)
  - BLOOD GLUCOSE INCREASED [None]
  - DIALYSIS [None]
  - DRUG INEFFECTIVE [None]
